FAERS Safety Report 10223452 (Version 1)
Quarter: 2014Q2

REPORT INFORMATION
  Report Type: Spontaneous
  Country: US (occurrence: US)
  Receive Date: 20140609
  Receipt Date: 20140609
  Transmission Date: 20141212
  Serious: No
  Sender: FDA-Public Use
  Company Number: US-009507513-1405USA014415

PATIENT
  Age: 62 Year
  Sex: Female

DRUGS (1)
  1. NASONEX [Suspect]
     Indication: RESPIRATORY DISORDER
     Dosage: 50 MICROGRAM,  AS NEEDED
     Route: 045

REACTIONS (3)
  - Sinus congestion [Recovering/Resolving]
  - Drug dose omission [Unknown]
  - Product quality issue [Unknown]
